FAERS Safety Report 19899427 (Version 1)
Quarter: 2021Q3

REPORT INFORMATION
  Report Type: Spontaneous
  Country: DE (occurrence: DE)
  Receive Date: 20210930
  Receipt Date: 20210930
  Transmission Date: 20211014
  Serious: Yes (Death, Hospitalization, Congenital Anomaly, Other)
  Sender: FDA-Public Use
  Company Number: NVSC2021DE220127

PATIENT
  Sex: Male
  Weight: 2.98 kg

DRUGS (7)
  1. VENLAFAXINE [Concomitant]
     Active Substance: VENLAFAXINE HYDROCHLORIDE
     Indication: DEPRESSION
     Dosage: 225 MG, QD (MG/D (MUTTER)
     Route: 065
     Dates: start: 20200313, end: 20201202
  2. CLONIDIN [Concomitant]
     Active Substance: CLONIDINE
     Indication: HYPERTENSION
     Dosage: 0.3 MG, QD (VATER)
     Route: 065
     Dates: start: 20200313, end: 20201202
  3. QUETIAPINE. [Concomitant]
     Active Substance: QUETIAPINE
     Indication: RESTLESSNESS
     Dosage: 350 MG, QD MG/D (50?50?50?200,VATER)
     Route: 065
     Dates: start: 20200313, end: 20201202
  4. ZOPICLONE [Concomitant]
     Active Substance: ZOPICLONE
     Indication: SLEEP DISORDER
     Dosage: 11 MG, QD (MG/D (VATER)
     Route: 065
     Dates: start: 20200313, end: 20201202
  5. PANTOPRAZOL AUROBINDO [Concomitant]
     Active Substance: PANTOPRAZOLE SODIUM
     Indication: PROPHYLAXIS AGAINST GASTROINTESTINAL ULCER
     Dosage: 40 MG, QD ( MG/D (VATER)
     Route: 065
     Dates: start: 20200313, end: 20201202
  6. BUPROPION. [Suspect]
     Active Substance: BUPROPION
     Indication: DEPRESSION
     Dosage: 300 MG, QD (MG/D (MUTTER)
     Route: 064
     Dates: start: 20200313, end: 20200407
  7. BEROTEC [Concomitant]
     Active Substance: FENOTEROL HYDROBROMIDE
     Indication: ASTHMA
     Route: 065
     Dates: start: 20200313, end: 20201202

REACTIONS (8)
  - Double inlet left ventricle [Fatal]
  - Congenital tricuspid valve atresia [Fatal]
  - Univentricular heart [Fatal]
  - Transposition of the great vessels [Fatal]
  - Ventricular septal defect [Unknown]
  - Foetal exposure during pregnancy [Unknown]
  - Exposure via body fluid [Unknown]
  - Atrial septal defect [Unknown]

NARRATIVE: CASE EVENT DATE: 20201202
